FAERS Safety Report 18292921 (Version 1)
Quarter: 2020Q3

REPORT INFORMATION
  Report Type: Report from Study
  Country: DE (occurrence: DE)
  Receive Date: 20200921
  Receipt Date: 20200921
  Transmission Date: 20201103
  Serious: Yes (Hospitalization, Other)
  Sender: FDA-Public Use
  Company Number: DE-PURDUE-USA-2020-0167068

PATIENT
  Sex: Female

DRUGS (14)
  1. OCREVUS [Suspect]
     Active Substance: OCRELIZUMAB
     Dosage: 300 MG, UNK
     Route: 042
     Dates: start: 20200220
  2. PREGABALIN. [Concomitant]
     Active Substance: PREGABALIN
     Dosage: 600 MG, UNK
  3. MIRTAZAPIN [Concomitant]
     Active Substance: MIRTAZAPINE
     Dosage: 7.5 MG, UNK
  4. PREGABALIN. [Concomitant]
     Active Substance: PREGABALIN
     Dosage: 200 MG, TID (100MG 2?2?2)
  5. PREGABALIN. [Concomitant]
     Active Substance: PREGABALIN
     Dosage: 200 MG, TID
  6. OCREVUS [Suspect]
     Active Substance: OCRELIZUMAB
     Dosage: 300 MG, UNK
     Route: 042
     Dates: start: 20200206
  7. PARACETAMOL [Concomitant]
     Active Substance: ACETAMINOPHEN
     Dosage: UNK (UP TO 3 TIMES PER DAY)
  8. NALOXON [Concomitant]
     Active Substance: NALOXONE HYDROCHLORIDE
     Dosage: 5 MG, UNK
  9. OXYCODONE HYDROCHLORIDE. [Suspect]
     Active Substance: OXYCODONE HYDROCHLORIDE
     Indication: PAIN
     Dosage: 10 MG, UNK
     Route: 065
  10. OCREVUS [Suspect]
     Active Substance: OCRELIZUMAB
     Indication: SECONDARY PROGRESSIVE MULTIPLE SCLEROSIS
     Dosage: 600 MG, UNK
     Route: 042
     Dates: start: 20200813
  11. CORTISONE [Suspect]
     Active Substance: CORTISONE
     Indication: PRODUCT USED FOR UNKNOWN INDICATION
     Dosage: 1000 MG, TID
     Route: 065
     Dates: start: 20200511, end: 20200513
  12. PANTOPRAZOL                        /01263201/ [Concomitant]
     Active Substance: PANTOPRAZOLE
     Dosage: 20 MG, UNK
  13. AMITRIPTYLIN [Concomitant]
     Active Substance: AMITRIPTYLINE
     Dosage: 25 MG, DAILY
  14. JUBRELE [Concomitant]
     Active Substance: DESOGESTREL

REACTIONS (29)
  - Vaginal discharge [Unknown]
  - Back pain [Recovering/Resolving]
  - Chills [Recovered/Resolved]
  - Fatigue [Recovered/Resolved]
  - Headache [Not Recovered/Not Resolved]
  - Constipation [Recovered/Resolved]
  - Fungal skin infection [Recovered/Resolved]
  - Hyperacusis [Recovering/Resolving]
  - Product use in unapproved indication [Unknown]
  - Speech disorder [Recovering/Resolving]
  - Dry skin [Recovering/Resolving]
  - Multiple sclerosis relapse [Not Recovered/Not Resolved]
  - Memory impairment [Unknown]
  - Feeling cold [Recovered/Resolved]
  - Musculoskeletal stiffness [Recovering/Resolving]
  - Coordination abnormal [Not Recovered/Not Resolved]
  - Pain [Recovering/Resolving]
  - Vomiting [Recovered/Resolved]
  - Muscle spasticity [Recovering/Resolving]
  - Head discomfort [Recovered/Resolved]
  - Photophobia [Recovering/Resolving]
  - Muscular weakness [Recovering/Resolving]
  - Menstruation irregular [Unknown]
  - Mood swings [Recovered/Resolved]
  - Off label use [Unknown]
  - Fatigue [Recovering/Resolving]
  - Loss of consciousness [Unknown]
  - Pain in extremity [Not Recovered/Not Resolved]
  - Joint range of motion decreased [Recovering/Resolving]

NARRATIVE: CASE EVENT DATE: 20200206
